FAERS Safety Report 24767132 (Version 2)
Quarter: 2025Q1

REPORT INFORMATION
  Report Type: Spontaneous
  Country: US (occurrence: US)
  Receive Date: 20241223
  Receipt Date: 20250123
  Transmission Date: 20250409
  Serious: No
  Sender: IPSEN BIOPHARMACEUTICALS, INC.
  Company Number: US-IPSEN Group, Research and Development-2024-25589

PATIENT
  Age: 19 Year
  Sex: Male
  Weight: 87 kg

DRUGS (6)
  1. TAZVERIK [Suspect]
     Active Substance: TAZEMETOSTAT HYDROBROMIDE
     Indication: Bone cancer
     Dosage: 800 MG TWICE DAILY
     Route: 048
     Dates: start: 20241203
  2. TAZVERIK [Suspect]
     Active Substance: TAZEMETOSTAT HYDROBROMIDE
     Indication: Off label use
  3. NEBIVOLOL [Concomitant]
     Active Substance: NEBIVOLOL
  4. ONDANSETRON [Concomitant]
     Active Substance: ONDANSETRON
  5. ROBINUL [Concomitant]
     Active Substance: GLYCOPYRROLATE
  6. IBUPROFEN [Concomitant]
     Active Substance: IBUPROFEN

REACTIONS (4)
  - Swelling [Recovering/Resolving]
  - Lymphadenopathy [Recovering/Resolving]
  - Inflammation [Recovering/Resolving]
  - Off label use [Unknown]

NARRATIVE: CASE EVENT DATE: 20241203
